FAERS Safety Report 5212229-3 (Version None)
Quarter: 2006Q4

REPORT INFORMATION
  Report Type: 
  Country: None (occurrence: None)
  Receive Date: 20061130
  Receipt Date: 20060126
  Transmission Date: 20070319
  Serious: Yes (Other)
  Sender: FDA-Public Use
  Company Number: WAES 0601USA03163

PATIENT
  Age: 81 Year
  Sex: Female
  Weight: 59.4212 kg

DRUGS (6)
  1. FOSAMAX [Suspect]
     Indication: OSTEOPOROSIS
     Dosage: 70 MG/WKY/PO
     Route: 048
     Dates: start: 20000101
  2. AMARYL [Concomitant]
  3. GLUCOPHAGE [Concomitant]
  4. ZOCOR [Concomitant]
  5. GLYBURIDE [Concomitant]
  6. LISINOPRIL [Concomitant]

REACTIONS (1)
  - OSTEONECROSIS [None]
